FAERS Safety Report 10195105 (Version 3)
Quarter: 2014Q2

REPORT INFORMATION
  Report Type: Spontaneous
  Country: US (occurrence: US)
  Receive Date: 20140526
  Receipt Date: 20140617
  Transmission Date: 20141212
  Serious: No
  Sender: FDA-Public Use
  Company Number: US-PFIZER INC-2014139178

PATIENT
  Age: 85 Year
  Sex: Female

DRUGS (1)
  1. LIPITOR [Suspect]
     Dosage: 10 MG, 1X/DAY

REACTIONS (2)
  - Blood pressure increased [Unknown]
  - Blood cholesterol increased [Unknown]
